FAERS Safety Report 5962057-6 (Version None)
Quarter: 2008Q4

REPORT INFORMATION
  Report Type: 
  Country: None (occurrence: None)
  Receive Date: 20081121
  Receipt Date: 20081113
  Transmission Date: 20090506
  Serious: Yes (Hospitalization)
  Sender: FDA-Public Use
  Company Number: BE-SANOFI-SYNTHELABO-F01200801728

PATIENT
  Sex: Female
  Weight: 66 kg

DRUGS (3)
  1. ZANTAC [Concomitant]
     Dates: start: 20070418, end: 20070509
  2. CLEXANE [Concomitant]
     Dosage: 40 MG
     Dates: start: 20070419, end: 20070613
  3. ELOXATIN [Suspect]
     Indication: COLON CANCER
     Dosage: 805 MG
     Route: 033

REACTIONS (2)
  - ILEUS [None]
  - SMALL INTESTINAL PERFORATION [None]
